FAERS Safety Report 23128279 (Version 1)
Quarter: 2023Q4

REPORT INFORMATION
  Report Type: Spontaneous
  Country: IL (occurrence: IL)
  Receive Date: 20231031
  Receipt Date: 20231031
  Transmission Date: 20240110
  Serious: Yes (Hospitalization)
  Sender: FDA-Public Use
  Company Number: None

PATIENT
  Age: 45 Year
  Sex: Male

DRUGS (4)
  1. OMEPRAZOLE [Suspect]
     Active Substance: OMEPRAZOLE
     Indication: Product used for unknown indication
     Dates: start: 20231015
  2. TIMOLOL MALEATE [Suspect]
     Active Substance: TIMOLOL MALEATE
  3. VERMOX [Suspect]
     Active Substance: MEBENDAZOLE
  4. COSOPT [Suspect]
     Active Substance: DORZOLAMIDE HYDROCHLORIDE\TIMOLOL MALEATE

REACTIONS (5)
  - Rash [Unknown]
  - Pruritus [Unknown]
  - Swelling [Unknown]
  - Ocular hyperaemia [Unknown]
  - Erythema [Unknown]
